FAERS Safety Report 19053037 (Version 2)
Quarter: 2021Q2

REPORT INFORMATION
  Report Type: Report from Study
  Country: BR (occurrence: BR)
  Receive Date: 20210324
  Receipt Date: 20210404
  Transmission Date: 20210717
  Serious: Yes (Other)
  Sender: FDA-Public Use
  Company Number: NVSC2021BR063533

PATIENT

DRUGS (3)
  1. EXELON [Suspect]
     Active Substance: RIVASTIGMINE TARTRATE
     Indication: DEMENTIA ALZHEIMER^S TYPE
     Dosage: 1 DF, Q24H
     Route: 065
  2. EXELON [Suspect]
     Active Substance: RIVASTIGMINE TARTRATE
     Indication: DEMENTIA ALZHEIMER^S TYPE
     Dosage: STARTED APPROXIMATELY 10?11 YRS AND STOPPED IN THE SAME YEAR THAT STARTED
     Route: 065
  3. EXELON [Suspect]
     Active Substance: RIVASTIGMINE TARTRATE
     Dosage: UNK
     Route: 065
     Dates: start: 20210320

REACTIONS (5)
  - Memory impairment [Unknown]
  - Product use in unapproved indication [Unknown]
  - Dementia [Recovering/Resolving]
  - Nightmare [Unknown]
  - Feeling abnormal [Unknown]
